FAERS Safety Report 10994504 (Version 2)
Quarter: 2015Q2

REPORT INFORMATION
  Report Type: Spontaneous
  Country: DE (occurrence: DE)
  Receive Date: 20150407
  Receipt Date: 20150410
  Transmission Date: 20150821
  Serious: Yes (Hospitalization, Other)
  Sender: FDA-Public Use
  Company Number: DE-GILEAD-2015-0140725

PATIENT
  Age: 74 Year
  Sex: Male

DRUGS (9)
  1. ADENURIC [Concomitant]
     Active Substance: FEBUXOSTAT
  2. SPIRONOLACTONE. [Concomitant]
     Active Substance: SPIRONOLACTONE
  3. PENTALONG [Concomitant]
     Active Substance: PENTAERYTHRITOL TETRANITRATE
     Dosage: UNK
     Dates: start: 20150226
  4. RANOLAZINE [Suspect]
     Active Substance: RANOLAZINE
     Indication: CORONARY ARTERY DISEASE
     Dosage: 2 X 375 MG, QD
     Route: 048
     Dates: start: 201412, end: 201501
  5. PROCORALAN [Concomitant]
     Active Substance: IVABRADINE
  6. ASA [Concomitant]
     Active Substance: ASPIRIN
  7. ATORVASTATIN [Concomitant]
     Active Substance: ATORVASTATIN
  8. THIAMAZOLE [Concomitant]
     Active Substance: METHIMAZOLE
  9. RANOLAZINE [Suspect]
     Active Substance: RANOLAZINE
     Dosage: 2X500 MG, QD
     Route: 048
     Dates: start: 201501, end: 20150226

REACTIONS (8)
  - Goitre [Unknown]
  - Swollen tongue [Recovering/Resolving]
  - Somnolence [Not Recovered/Not Resolved]
  - Swelling face [Recovering/Resolving]
  - Respiratory distress [Not Recovered/Not Resolved]
  - Off label use [Unknown]
  - Skin discolouration [Unknown]
  - Asthenia [Not Recovered/Not Resolved]

NARRATIVE: CASE EVENT DATE: 201412
